FAERS Safety Report 12490884 (Version 1)
Quarter: 2016Q2

REPORT INFORMATION
  Report Type: Spontaneous
  Country: US (occurrence: US)
  Receive Date: 20160623
  Receipt Date: 20160623
  Transmission Date: 20160815
  Serious: No
  Sender: FDA-Public Use
  Company Number: US-AUROBINDO-AUR-APL-2015-10918

PATIENT
  Sex: Female

DRUGS (1)
  1. ZOLPIDEM TABLET [Suspect]
     Active Substance: ZOLPIDEM\ZOLPIDEM TARTRATE
     Indication: INSOMNIA
     Route: 048

REACTIONS (3)
  - Frequent bowel movements [Not Recovered/Not Resolved]
  - Middle insomnia [None]
  - Abdominal pain upper [Not Recovered/Not Resolved]
